FAERS Safety Report 4839615-5 (Version None)
Quarter: 2005Q4

REPORT INFORMATION
  Report Type: 
  Country: None (occurrence: None)
  Receive Date: 20051129
  Receipt Date: 20050406
  Transmission Date: 20060501
  Serious: No
  Sender: FDA-Public Use
  Company Number: US-GLAXOSMITHKLINE-A0553073A

PATIENT
  Age: 10 Year
  Sex: Male

DRUGS (3)
  1. WELLBUTRIN SR [Suspect]
     Indication: DRUG USE FOR UNKNOWN INDICATION
     Dosage: 150MG TWICE PER DAY
     Route: 048
     Dates: start: 20050101
  2. ABILIFY [Concomitant]
     Dosage: 20MG PER DAY
     Route: 065
  3. TRILEPTAL [Concomitant]
     Dosage: 450MG PER DAY
     Route: 065

REACTIONS (3)
  - DYSKINESIA [None]
  - JOINT CREPITATION [None]
  - TIC [None]
